FAERS Safety Report 7974720-6 (Version None)
Quarter: 2011Q4

REPORT INFORMATION
  Report Type: 
  Country: None (occurrence: None)
  Receive Date: 20111213
  Receipt Date: 20111206
  Transmission Date: 20120403
  Serious: Yes (Hospitalization)
  Sender: FDA-Public Use
  Company Number: US-CELGENEUS-163-21880-11120850

PATIENT
  Sex: Male
  Weight: 108.96 kg

DRUGS (8)
  1. DEXAMETHASONE [Concomitant]
     Dosage: 4 MILLIGRAM
     Route: 065
  2. COUMADIN [Concomitant]
     Dosage: 4 MILLIGRAM
     Route: 065
  3. LASIX [Concomitant]
     Dosage: 80 MILLIGRAM
     Route: 065
  4. REVLIMID [Suspect]
     Indication: MULTIPLE MYELOMA
     Dosage: 10 MILLIGRAM
     Route: 048
     Dates: start: 20111001, end: 20111101
  5. METOPROLOL TARTRATE [Concomitant]
     Dosage: 50 MILLIGRAM
     Route: 065
  6. PRILOSEC [Concomitant]
     Dosage: 20 MILLIGRAM
     Route: 065
  7. PRAVASTATIN [Concomitant]
     Dosage: 20 MILLIGRAM
     Route: 065
  8. ASPIRIN [Concomitant]
     Dosage: 81 MILLIGRAM
     Route: 065

REACTIONS (1)
  - CAPILLARY LEAK SYNDROME [None]
